FAERS Safety Report 17415495 (Version 4)
Quarter: 2020Q3

REPORT INFORMATION
  Report Type: Spontaneous
  Country: DE (occurrence: DE)
  Receive Date: 20200213
  Receipt Date: 20200923
  Transmission Date: 20201102
  Serious: Yes (Death, Life-Threatening, Hospitalization, Other)
  Sender: FDA-Public Use
  Company Number: DE-MYLANLABS-2020M1016311

PATIENT
  Sex: Female
  Weight: 52 kg

DRUGS (38)
  1. AZATHIOPRINE. [Suspect]
     Active Substance: AZATHIOPRINE
     Indication: LYMPHOPENIA
     Dosage: 50 MG
     Route: 065
     Dates: start: 20100419, end: 201904
  2. PENTACARINAT [Suspect]
     Active Substance: PENTAMIDINE ISETHIONATE
     Dosage: UNK
     Route: 055
     Dates: start: 201904
  3. LAXATAN M [Concomitant]
     Indication: PRODUCT USED FOR UNKNOWN INDICATION
     Dosage: UNK
  4. ELIQUIS [Suspect]
     Active Substance: APIXABAN
     Dosage: 2.5 MILLIGRAM (2.5 MG)
     Route: 065
  5. MCP                                /00041902/ [Concomitant]
     Active Substance: METOCLOPRAMIDE HYDROCHLORIDE
     Indication: PRODUCT USED FOR UNKNOWN INDICATION
     Dosage: UNK UNK, QD (UNK UNK, TID 10)
  6. ANORO [Concomitant]
     Active Substance: UMECLIDINIUM BROMIDE\VILANTEROL TRIFENATATE
     Indication: PRODUCT USED FOR UNKNOWN INDICATION
     Dosage: UNK (UNK, 55/221 PUSH)
     Route: 055
  7. EZETROL [Concomitant]
     Active Substance: EZETIMIBE
     Indication: PRODUCT USED FOR UNKNOWN INDICATION
     Dosage: UNK UNK, QD (UNK UNK, QD 10 (0?0?1))
  8. DULOXETINE. [Concomitant]
     Active Substance: DULOXETINE
     Indication: PRODUCT USED FOR UNKNOWN INDICATION
     Dosage: UNK UNK, QD (UNK UNK, QD 30 (1?0?0))
  9. SAB SIMPLEX                        /00159501/ [Concomitant]
     Indication: PRODUCT USED FOR UNKNOWN INDICATION
     Dosage: UNK (UNK, 30GTT TO 3X/D)
  10. ACICLOVIR [Suspect]
     Active Substance: ACYCLOVIR
     Indication: SYSTEMIC LUPUS ERYTHEMATOSUS
     Dosage: UNK
     Route: 065
  11. ACICLOVIR [Suspect]
     Active Substance: ACYCLOVIR
     Dosage: 1200 MILLIGRAM, QD (400 MG, TID)
  12. AZATHIOPRINE. [Suspect]
     Active Substance: AZATHIOPRINE
     Indication: WHITE BLOOD CELL COUNT DECREASED
     Dosage: 50 MG
     Route: 065
     Dates: start: 20100419, end: 201907
  13. AZATHIOPRINE. [Suspect]
     Active Substance: AZATHIOPRINE
     Dosage: 50 MILLIGRAM
     Dates: start: 201906, end: 201907
  14. FLUVASTATIN [Suspect]
     Active Substance: FLUVASTATIN SODIUM
     Dosage: UNK UNK, QD, UNK UNK, QD 20 (0?0?1)
     Route: 065
  15. QUENSYL [Concomitant]
     Active Substance: HYDROXYCHLOROQUINE
     Indication: PRODUCT USED FOR UNKNOWN INDICATION
     Dosage: 200 MILLIGRAM
     Dates: start: 1994, end: 1997
  16. BAYOTENSIN [Concomitant]
     Active Substance: NITRENDIPINE
     Indication: PRODUCT USED FOR UNKNOWN INDICATION
     Dosage: UNK
  17. L?THYROX [Concomitant]
     Active Substance: LEVOTHYROXINE SODIUM
     Indication: PRODUCT USED FOR UNKNOWN INDICATION
     Dosage: UNK UNK, QD (UNK UNK, QD 50 (1?0?0))
  18. AZATHIOPRINE. [Suspect]
     Active Substance: AZATHIOPRINE
     Indication: SYSTEMIC LUPUS ERYTHEMATOSUS
     Dosage: UNK
     Route: 065
     Dates: start: 1997, end: 2008
  19. MORPHIN                            /00036302/ [Concomitant]
     Active Substance: MORPHINE SULFATE
     Indication: PRODUCT USED FOR UNKNOWN INDICATION
     Dosage: UNK, QD (UNK UNK, BID 30 RET (1?0?1))
  20. VALSARTAN. [Suspect]
     Active Substance: VALSARTAN
     Dosage: UNK UNK, QD (UNK UNK, BID 160 (1?0?1))
     Route: 065
  21. BENLYSTA [Suspect]
     Active Substance: BELIMUMAB
     Dosage: 200 MILLIGRAM/KILOGRAM, QWK
     Route: 058
     Dates: start: 201708, end: 201904
  22. ELIQUIS [Suspect]
     Active Substance: APIXABAN
     Indication: SYSTEMIC LUPUS ERYTHEMATOSUS
     Dosage: UNK
     Route: 065
  23. FLUVASTATIN [Suspect]
     Active Substance: FLUVASTATIN SODIUM
     Indication: SYSTEMIC LUPUS ERYTHEMATOSUS
     Dosage: UNK
     Route: 065
  24. PENTACARINAT [Suspect]
     Active Substance: PENTAMIDINE ISETHIONATE
     Indication: SYSTEMIC LUPUS ERYTHEMATOSUS
     Dosage: UNK
     Route: 055
  25. DETRUSITOL [Suspect]
     Active Substance: TOLTERODINE TARTRATE
     Indication: SYSTEMIC LUPUS ERYTHEMATOSUS
     Dosage: UNK
     Route: 065
  26. SEVREDOL [Suspect]
     Active Substance: MORPHINE
     Indication: SYSTEMIC LUPUS ERYTHEMATOSUS
     Dosage: UNK
     Route: 065
  27. SEVREDOL [Suspect]
     Active Substance: MORPHINE
     Dosage: UNK (UNK, 20 TO S5X/D,)
     Route: 065
  28. QUENSYL [Concomitant]
     Active Substance: HYDROXYCHLOROQUINE
     Dosage: 200 MILLIGRAM, QD (200 MG, QD (0?0?1))
     Route: 065
     Dates: start: 2008
  29. ISDN [Concomitant]
     Indication: PRODUCT USED FOR UNKNOWN INDICATION
     Dosage: UNK UNK, QD (UNK UNK, BID20 RET (1?1?0))
  30. VALSARTAN. [Suspect]
     Active Substance: VALSARTAN
     Indication: SYSTEMIC LUPUS ERYTHEMATOSUS
     Dosage: UNK
     Route: 065
  31. MOLSIDOMINE [Suspect]
     Active Substance: MOLSIDOMINE
     Indication: SYSTEMIC LUPUS ERYTHEMATOSUS
     Dosage: UNK
  32. DEKRISTOL [Concomitant]
     Active Substance: CHOLECALCIFEROL
     Indication: PRODUCT USED FOR UNKNOWN INDICATION
     Dosage: UNK UNK, QW (UNK UNK, WE, 20000)
  33. PREDNISOLONE. [Suspect]
     Active Substance: PREDNISOLONE
     Indication: SYSTEMIC LUPUS ERYTHEMATOSUS
     Dosage: 5 MG, QD
     Route: 065
     Dates: start: 1988
  34. ACICLOVIR [Suspect]
     Active Substance: ACYCLOVIR
     Dosage: 400 MILLIGRAM, QD (400 MG, TID)
     Route: 065
  35. MOLSIDOMINE [Suspect]
     Active Substance: MOLSIDOMINE
     Dosage: UNK UNK, QD (UNK UNK, QD 8 RET (0?0?1))
     Route: 065
  36. LEVOTHYROXINE SODIUM. [Suspect]
     Active Substance: LEVOTHYROXINE SODIUM
     Indication: SYSTEMIC LUPUS ERYTHEMATOSUS
     Dosage: UNK
     Route: 065
  37. BENLYSTA [Suspect]
     Active Substance: BELIMUMAB
     Indication: WHITE BLOOD CELL COUNT DECREASED
     Dosage: 10 MILLIGRAM/KILOGRAM, QWK
     Route: 058
     Dates: start: 201711, end: 201812
  38. BENLYSTA [Suspect]
     Active Substance: BELIMUMAB
     Indication: SYSTEMIC LUPUS ERYTHEMATOSUS
     Dosage: 200 MILLIGRAM, QW
     Route: 058
     Dates: start: 201806, end: 201807

REACTIONS (31)
  - Pleuritic pain [Unknown]
  - Antinuclear antibody negative [Unknown]
  - Leukopenia [Unknown]
  - Depression [Unknown]
  - Drug hypersensitivity [Unknown]
  - Product use in unapproved indication [Unknown]
  - Gastrooesophageal reflux disease [Unknown]
  - Urinary tract infection [Unknown]
  - Herpes simplex reactivation [Unknown]
  - Pneumocystis jirovecii pneumonia [Fatal]
  - Erysipelas [Unknown]
  - Gastritis haemorrhagic [Unknown]
  - Coombs positive haemolytic anaemia [Unknown]
  - Complex regional pain syndrome [Unknown]
  - Thrombocytopenia [Unknown]
  - Hypertension [Unknown]
  - Hypothyroidism [Unknown]
  - Pancreatitis acute [Unknown]
  - Peritonitis [Fatal]
  - Lymphopenia [Fatal]
  - Anxiety disorder [Unknown]
  - Skin disorder [Unknown]
  - Systemic lupus erythematosus [Unknown]
  - Sepsis [Fatal]
  - Off label use [Unknown]
  - Hyperlipidaemia [Unknown]
  - Intentional product use issue [Unknown]
  - Fall [Unknown]
  - Colitis ulcerative [Unknown]
  - Antiphospholipid syndrome [Unknown]
  - Osteonecrosis [Unknown]

NARRATIVE: CASE EVENT DATE: 1990
